FAERS Safety Report 20222915 (Version 1)
Quarter: 2021Q4

REPORT INFORMATION
  Report Type: Spontaneous
  Country: DE (occurrence: DE)
  Receive Date: 20211223
  Receipt Date: 20211223
  Transmission Date: 20220303
  Serious: Yes (Hospitalization)
  Sender: FDA-Public Use
  Company Number: None

PATIENT
  Age: 82 Year
  Sex: Female

DRUGS (8)
  1. AMLODIPINE BESYLATE [Suspect]
     Active Substance: AMLODIPINE BESYLATE
     Dosage: 5 MG, 2X/DAY  (1-0-1-0)
  2. BISOPROLOL [Concomitant]
     Active Substance: BISOPROLOL
     Dosage: 5 MG, 1X/DAY
  3. METAMIZOLE [Concomitant]
     Active Substance: METAMIZOLE
     Dosage: 30 DROP, 4X/DAY
  4. SPIRONOLACTONE [Concomitant]
     Active Substance: SPIRONOLACTONE
     Dosage: 0.5 DF, 1X/DAY
  5. RAMIPRIL [Concomitant]
     Active Substance: RAMIPRIL
     Dosage: 5 MG, 2X/DAY
  6. LEVOTHYROXINE SODIUM\POTASSIUM IODIDE [Concomitant]
     Active Substance: LEVOTHYROXINE SODIUM\POTASSIUM IODIDE
     Dosage: 1 DF, 1X/DAY
  7. BALDRIANWURZEL [Concomitant]
     Dosage: 1 DF, 1X/DAY
  8. CHLORTHALIDONE [Concomitant]
     Active Substance: CHLORTHALIDONE
     Dosage: 0.5 DF, 1X/DAY

REACTIONS (4)
  - Condition aggravated [Recovering/Resolving]
  - Chest pain [Recovering/Resolving]
  - General physical health deterioration [Recovering/Resolving]
  - Dyspnoea [Recovering/Resolving]
